FAERS Safety Report 24000930 (Version 2)
Quarter: 2024Q3

REPORT INFORMATION
  Report Type: Spontaneous
  Country: JP (occurrence: None)
  Receive Date: 20240621
  Receipt Date: 20240702
  Transmission Date: 20241016
  Serious: Yes (Other)
  Sender: ASTRAZENECA
  Company Number: 2024A140639

PATIENT
  Age: 69 Year
  Sex: Female

DRUGS (2)
  1. ONDEXXYA [Suspect]
     Active Substance: ANDEXANET ALFA
     Indication: Subarachnoid haemorrhage
     Dosage: A METHOD (INTRAVENOUS ADMINISTRATION OF 400 MG AT A RATE OF 30 MG/MIN FOLLOWED BY INTRAVENOUS ADM...
     Route: 042
     Dates: start: 20240610
  2. RIVAROXABAN [Concomitant]
     Active Substance: RIVAROXABAN
     Indication: Atrial fibrillation
     Dosage: NUMBER OF SEPARATE DOSAGES UNKNOWN
     Route: 048

REACTIONS (1)
  - Ruptured cerebral aneurysm [Unknown]

NARRATIVE: CASE EVENT DATE: 20240610
